FAERS Safety Report 4835781-6 (Version None)
Quarter: 2005Q4

REPORT INFORMATION
  Report Type: 
  Country: None (occurrence: None)
  Receive Date: 20051123
  Receipt Date: 20051118
  Transmission Date: 20060501
  Serious: Yes (Death)
  Sender: FDA-Public Use
  Company Number: BR-GLAXOSMITHKLINE-A0582986A

PATIENT
  Age: 68 Year
  Sex: Female
  Weight: 58 kg

DRUGS (11)
  1. DIGOXINA [Suspect]
     Indication: DRUG USE FOR UNKNOWN INDICATION
     Dosage: .25MG UNKNOWN
     Route: 048
     Dates: start: 19850101, end: 20050101
  2. HYDERGINE [Concomitant]
     Route: 065
  3. PHENYTOIN SODIUM [Concomitant]
     Route: 065
  4. WARFARIN [Concomitant]
     Route: 065
  5. OMEPRAZOLE [Concomitant]
     Route: 065
  6. METFORMIN [Concomitant]
     Route: 065
  7. DIAZEPAM [Concomitant]
     Route: 065
  8. THIAMAZOLE [Concomitant]
     Dosage: 10MG UNKNOWN
     Route: 065
  9. SPIRONOLACTONE [Concomitant]
     Route: 065
  10. CAPTOPRIL [Concomitant]
     Route: 065
  11. PENTOXIFYLLINE [Concomitant]
     Route: 065

REACTIONS (7)
  - ATRIAL FIBRILLATION [None]
  - CARDIAC FAILURE [None]
  - CEREBROVASCULAR ACCIDENT [None]
  - DEATH [None]
  - DIABETES MELLITUS NON-INSULIN-DEPENDENT [None]
  - RESPIRATORY FAILURE [None]
  - VENTRICULAR ASYSTOLE [None]
